FAERS Safety Report 4458427-8 (Version None)
Quarter: 2004Q3

REPORT INFORMATION
  Report Type: 
  Country: None (occurrence: None)
  Receive Date: 20040922
  Receipt Date: 20040909
  Transmission Date: 20050211
  Serious: Yes (Hospitalization)
  Sender: FDA-Public Use
  Company Number: 04P-044-0272953-00

PATIENT
  Age: 56 Year
  Sex: Female

DRUGS (7)
  1. HUMIRA [Suspect]
     Indication: RHEUMATOID ARTHRITIS
     Dosage: 40 MG, 1 IN 14 D, SUBCUTANEOUS
     Route: 058
     Dates: start: 20020927, end: 20040728
  2. FOLIC ACID [Concomitant]
  3. PARACETAMOL [Concomitant]
  4. ETIDRONATE DISODIUM [Concomitant]
  5. MINI POTASSIUM VITAMIN [Concomitant]
  6. PICASOL [Concomitant]
  7. MULTI-VITAMINS [Concomitant]

REACTIONS (13)
  - ARTHROPOD BITE [None]
  - ASTHENIA [None]
  - BREAST PAIN [None]
  - CONDITION AGGRAVATED [None]
  - DRUG INEFFECTIVE [None]
  - DYSPNOEA [None]
  - FATIGUE [None]
  - LUPUS-LIKE SYNDROME [None]
  - OEDEMA PERIPHERAL [None]
  - PSORIATIC ARTHROPATHY [None]
  - PYREXIA [None]
  - RHEUMATOID ARTHRITIS [None]
  - SYNOVITIS [None]
